FAERS Safety Report 15429066 (Version 1)
Quarter: 2018Q3

REPORT INFORMATION
  Report Type: Spontaneous
  Country: US (occurrence: US)
  Receive Date: 20180926
  Receipt Date: 20180926
  Transmission Date: 20181010
  Serious: No
  Sender: FDA-Public Use
  Company Number: US-PFIZER INC-2018385261

PATIENT
  Age: 10 Year

DRUGS (1)
  1. EUCRISA [Suspect]
     Active Substance: CRISABOROLE
     Dosage: UNK, 2X/WEEK

REACTIONS (3)
  - Application site discolouration [Unknown]
  - Application site oedema [Unknown]
  - Application site dermatitis [Unknown]
